FAERS Safety Report 13382903 (Version 2)
Quarter: 2017Q2

REPORT INFORMATION
  Report Type: Spontaneous
  Country: IT (occurrence: IT)
  Receive Date: 20170329
  Receipt Date: 20170406
  Transmission Date: 20170830
  Serious: Yes (Hospitalization)
  Sender: FDA-Public Use
  Company Number: IT-PFIZER INC-2017131208

PATIENT
  Age: 8 Year
  Sex: Male
  Weight: 44 kg

DRUGS (4)
  1. UROMITEXAN [Concomitant]
     Active Substance: MESNA
     Indication: CYSTITIS HAEMORRHAGIC
     Dosage: 1140 MG, UNK
     Route: 042
     Dates: start: 20170303, end: 20170307
  2. VINCRISTINA TEVA [Suspect]
     Active Substance: VINCRISTINE
     Indication: NON-HODGKIN^S LYMPHOMA
     Dosage: 1.94 MG, TOTAL
     Route: 042
     Dates: start: 20170303, end: 20170303
  3. HOLOXAN [Suspect]
     Active Substance: IFOSFAMIDE
     Indication: NON-HODGKIN^S LYMPHOMA
     Dosage: 1032 MG, DAILY
     Route: 042
     Dates: start: 20170303, end: 20170307
  4. METHOTREXATE SODIUM. [Suspect]
     Active Substance: METHOTREXATE SODIUM
     Indication: NON-HODGKIN^S LYMPHOMA
     Dosage: 1290 MG, TOTAL
     Route: 042
     Dates: start: 20170303, end: 20170304

REACTIONS (1)
  - Erythema [Unknown]

NARRATIVE: CASE EVENT DATE: 20170305
